FAERS Safety Report 10511114 (Version 1)
Quarter: 2014Q4

REPORT INFORMATION
  Report Type: Spontaneous
  Country: US (occurrence: None)
  Receive Date: 20141002
  Receipt Date: 20141002
  Transmission Date: 20150528
  Serious: Yes (Other)
  Sender: FDA-Public Use
  Company Number: PHEH2014US013514

PATIENT
  Age: 69 Year
  Sex: Female

DRUGS (10)
  1. PRILOSECT(OMEPRAZOLE) [Concomitant]
  2. KLOR CON(POTASSIUM CHLORIDE) [Concomitant]
  3. AFINITOR [Suspect]
     Active Substance: EVEROLIMUS
     Indication: BREAST CANCER
  4. AROMASIN [Suspect]
     Active Substance: EXEMESTANE
     Dosage: 1 DF, QD
  5. ALTACE(RAMIPRIL) [Concomitant]
  6. VITAMIN D (ERGOCALCIFEROL) [Concomitant]
     Active Substance: ERGOCALCIFEROL
  7. VITAMIN B (VITAMIN B COMPLEX) [Concomitant]
  8. COREG(CARVEDILOL) [Concomitant]
  9. LASIX(FUROSEMIDE) [Concomitant]
  10. LEXAPRO(SCITALOPRAM OXALATE) [Concomitant]

REACTIONS (2)
  - Dyspnoea [None]
  - Joint swelling [None]
